FAERS Safety Report 4777145-X (Version None)
Quarter: 2005Q3

REPORT INFORMATION
  Report Type: 
  Country: None (occurrence: None)
  Receive Date: 20050923
  Receipt Date: 20000801
  Transmission Date: 20060218
  Serious: Yes (Death, Hospitalization)
  Sender: FDA-Public Use
  Company Number: FR-ROCHE-242025

PATIENT
  Age: 21 Year
  Sex: Female
  Weight: 57 kg

DRUGS (5)
  1. ROACCUTANE [Suspect]
     Indication: ACNE
     Route: 048
     Dates: start: 19960115, end: 19961015
  2. VARNOLINE [Suspect]
     Indication: CONTRACEPTION
     Route: 048
     Dates: start: 19940611
  3. DIANE 35 [Suspect]
     Route: 048
  4. KREDEX [Concomitant]
     Dates: start: 20000415
  5. ALDACTONE [Concomitant]
     Dates: start: 20000415

REACTIONS (15)
  - ARRHYTHMIA [None]
  - ASTHENIA [None]
  - CONGESTIVE CARDIOMYOPATHY [None]
  - CONJUNCTIVITIS [None]
  - FATIGUE [None]
  - GENERAL PHYSICAL HEALTH DETERIORATION [None]
  - HYPERCHOLESTEROLAEMIA [None]
  - INFECTION [None]
  - INFLUENZA [None]
  - PULMONARY HYPERTENSION [None]
  - TRACHEITIS [None]
  - VENTRICULAR EXTRASYSTOLES [None]
  - VENTRICULAR FAILURE [None]
  - VIRAL MYOCARDITIS [None]
  - WEIGHT DECREASED [None]
